FAERS Safety Report 5554706-1 (Version None)
Quarter: 2007Q4

REPORT INFORMATION
  Report Type: 
  Country: None (occurrence: None)
  Receive Date: 20071213
  Receipt Date: 20070803
  Transmission Date: 20080405
  Serious: No
  Sender: FDA-Public Use
  Company Number: US-AMGEN-KDL236318

PATIENT
  Sex: Female

DRUGS (15)
  1. ENBREL [Suspect]
     Indication: PSORIATIC ARTHROPATHY
     Route: 058
     Dates: start: 20070612
  2. METHOTREXATE [Concomitant]
     Route: 048
  3. EFFEXOR [Concomitant]
  4. RITALIN [Concomitant]
  5. CATAPRES [Concomitant]
  6. ATARAX [Concomitant]
  7. FLEXERIL [Concomitant]
  8. VICODIN [Concomitant]
  9. FLONASE [Concomitant]
  10. PRILOSEC [Concomitant]
  11. COLCHICINE [Concomitant]
  12. SEREVENT [Concomitant]
  13. LIPITOR [Concomitant]
  14. TESTOSTERONE [Concomitant]
  15. PROGESTERONE [Concomitant]

REACTIONS (4)
  - INJECTION SITE ERYTHEMA [None]
  - INJECTION SITE PRURITUS [None]
  - INJECTION SITE RASH [None]
  - INJECTION SITE REACTION [None]
